FAERS Safety Report 4687115-8 (Version None)
Quarter: 2005Q2

REPORT INFORMATION
  Report Type: 
  Country: None (occurrence: None)
  Receive Date: 20050608
  Receipt Date: 20050523
  Transmission Date: 20051028
  Serious: Yes (Other)
  Sender: FDA-Public Use
  Company Number: 2005-0008358

PATIENT
  Age: 38 Year
  Sex: Male

DRUGS (1)
  1. VIREAD [Suspect]
     Indication: HIV INFECTION

REACTIONS (3)
  - ABSCESS [None]
  - ORCHITIS [None]
  - THERAPY NON-RESPONDER [None]
